FAERS Safety Report 23927447 (Version 1)
Quarter: 2024Q2

REPORT INFORMATION
  Report Type: Other
  Country: US (occurrence: MA)
  Receive Date: 20240531
  Receipt Date: 20240531
  Transmission Date: 20240716
  Serious: Yes (Death, Life-Threatening, Hospitalization, Other)
  Sender: FDA-Public Use
  Company Number: MA-Saptalis Pharmaceuticals LLC-2157649

PATIENT
  Age: 26 Year
  Sex: Female
  Weight: 50 kg

DRUGS (5)
  1. LIKMEZ [Suspect]
     Active Substance: METRONIDAZOLE
     Indication: Diarrhoea
     Route: 065
  2. AZATHIOPRINE [Suspect]
     Active Substance: AZATHIOPRINE
  3. SULFASALAZINE [Suspect]
     Active Substance: SULFASALAZINE
     Route: 065
  4. METHOTREXATE [Suspect]
     Active Substance: METHOTREXATE
     Route: 065
  5. CYCLOSPORINE [Suspect]
     Active Substance: CYCLOSPORINE

REACTIONS (11)
  - Headache [Unknown]
  - Mutism [Unknown]
  - Dystonia [Unknown]
  - Cerebellar ataxia [Unknown]
  - Pneumonia aspiration [Unknown]
  - Septic shock [Fatal]
  - Encephalopathy [Unknown]
  - Hallucination, auditory [Unknown]
  - Vomiting [Unknown]
  - Vertigo [Unknown]
  - Diplopia [Unknown]
